FAERS Safety Report 18372996 (Version 2)
Quarter: 2020Q4

REPORT INFORMATION
  Report Type: Spontaneous
  Country: JP (occurrence: JP)
  Receive Date: 20201012
  Receipt Date: 20201126
  Transmission Date: 20210114
  Serious: Yes (Other)
  Sender: FDA-Public Use
  Company Number: JP-AMGEN-JPNSP2020164678

PATIENT

DRUGS (1)
  1. APREMILAST [Suspect]
     Active Substance: APREMILAST
     Indication: BEHCET^S SYNDROME
     Dosage: UNK
     Route: 048

REACTIONS (12)
  - Drug ineffective [Unknown]
  - Mouth ulceration [Unknown]
  - Hepatic function abnormal [Unknown]
  - Diarrhoea [Recovered/Resolved]
  - Headache [Unknown]
  - Vomiting [Unknown]
  - Therapeutic product effect incomplete [Unknown]
  - Nausea [Recovered/Resolved]
  - Retinal vein occlusion [Unknown]
  - Off label use [Unknown]
  - Interleukin level increased [Unknown]
  - Hallucination, auditory [Unknown]
